FAERS Safety Report 25358228 (Version 1)
Quarter: 2025Q2

REPORT INFORMATION
  Report Type: Spontaneous
  Country: US (occurrence: US)
  Receive Date: 20250526
  Receipt Date: 20250526
  Transmission Date: 20250716
  Serious: No
  Sender: HIKMA
  Company Number: US-HIKMA PHARMACEUTICALS USA INC.-US-H14001-25-04099

PATIENT
  Sex: Female

DRUGS (2)
  1. DOXYCYCLINE [Suspect]
     Active Substance: DOXYCYCLINE
     Indication: Sinusitis
     Route: 065
     Dates: start: 20250422
  2. DOXYCYCLINE [Suspect]
     Active Substance: DOXYCYCLINE
     Route: 065
     Dates: start: 20250423

REACTIONS (6)
  - Malaise [Unknown]
  - Condition aggravated [Unknown]
  - Migraine [Unknown]
  - Headache [Unknown]
  - Drug hypersensitivity [Unknown]
  - Product dose omission issue [Unknown]

NARRATIVE: CASE EVENT DATE: 20250401
